FAERS Safety Report 25422256 (Version 2)
Quarter: 2025Q2

REPORT INFORMATION
  Report Type: Spontaneous
  Country: GB (occurrence: GB)
  Receive Date: 20250611
  Receipt Date: 20250616
  Transmission Date: 20250717
  Serious: Yes (Other)
  Sender: MYLAN
  Company Number: GB-MYLANLABS-2025M1046654

PATIENT
  Sex: Female

DRUGS (17)
  1. CLOZARIL [Suspect]
     Active Substance: CLOZAPINE
     Indication: Schizophrenia
     Dosage: 125 MILLIGRAM, BID (TWICE A DAY, SPLIT DOSE)
     Dates: start: 20250522, end: 20250530
  2. CLOZARIL [Suspect]
     Active Substance: CLOZAPINE
  3. CHLORHEXIDINE [Suspect]
     Active Substance: CHLORHEXIDINE
     Indication: Product used for unknown indication
     Dosage: UNK, QD (UP TO 20ML/ PER DAY)
  4. BECLOMETHASONE DIPROPIONATE [Suspect]
     Active Substance: BECLOMETHASONE DIPROPIONATE
     Indication: Product used for unknown indication
     Dosage: 2 DOSAGE FORM, BID (TWICE A DAY)
  5. CHOLECALCIFEROL [Suspect]
     Active Substance: CHOLECALCIFEROL
     Indication: Product used for unknown indication
     Dosage: UNK, AM, (MANE) (400 UNITS)
  6. DESOGESTREL [Suspect]
     Active Substance: DESOGESTREL
     Indication: Product used for unknown indication
     Dosage: 75 MILLIGRAM, AM (MANE)
  7. FERROUS FUMARATE [Suspect]
     Active Substance: FERROUS FUMARATE
     Indication: Product used for unknown indication
     Dosage: 210 MILLIGRAM, AM (MANE)
  8. FLUPENTIXOL DECANOATE [Suspect]
     Active Substance: FLUPENTIXOL DECANOATE
     Indication: Product used for unknown indication
     Dosage: 3 MILLIGRAM, BID (TWICE A DAY)
  9. SENNA [Suspect]
     Active Substance: SENNOSIDES
     Indication: Product used for unknown indication
     Dosage: 150 MILLIGRAM, QD (PER DAY)
  10. BONJELA [Concomitant]
     Active Substance: CETALKONIUM CHLORIDE\CHOLINE SALICYLATE\MENTHOL
  11. LORAZEPAM [Concomitant]
     Active Substance: LORAZEPAM
  12. LORAZEPAM [Concomitant]
     Active Substance: LORAZEPAM
  13. ACETAMINOPHEN [Concomitant]
     Active Substance: ACETAMINOPHEN
  14. PROCYCLIDINE [Concomitant]
     Active Substance: PROCYCLIDINE
  15. PROMETHAZINE [Concomitant]
     Active Substance: PROMETHAZINE HYDROCHLORIDE
  16. PROMETHAZINE [Concomitant]
     Active Substance: PROMETHAZINE HYDROCHLORIDE
     Dosage: UNK, QD (25MG UP TO 25MG/PER DAY)
  17. ALBUTEROL [Concomitant]
     Active Substance: ALBUTEROL

REACTIONS (6)
  - Lower respiratory tract infection [Recovering/Resolving]
  - Cough [Recovered/Resolved]
  - C-reactive protein increased [Unknown]
  - Confusional state [Unknown]
  - Tachycardia [Recovering/Resolving]
  - Medication error [Unknown]
